FAERS Safety Report 13304300 (Version 2)
Quarter: 2018Q4

REPORT INFORMATION
  Report Type: Spontaneous
  Country: JP (occurrence: JP)
  Receive Date: 20170308
  Receipt Date: 20181120
  Transmission Date: 20190204
  Serious: Yes (Hospitalization, Other)
  Sender: FDA-Public Use
  Company Number: JP-AMGEN-JPNSP2017007807

PATIENT
  Age: 74 Year
  Sex: Female
  Weight: 77 kg

DRUGS (7)
  1. UNISIA [Concomitant]
     Active Substance: AMLODIPINE BESYLATE\CANDESARTAN CILEXETIL
     Dosage: 1 DF, 1X/DAY
     Route: 048
  2. INNOLET 30R [Concomitant]
     Active Substance: INSULIN NOS
     Dosage: 32 IU, DAILY
  3. AROTINOLOL HYDROCHLORIDE [Concomitant]
     Active Substance: AROTINOLOL HYDROCHLORIDE
     Dosage: 10 MG, 3X/DAY
  4. EVAMYL [Concomitant]
     Active Substance: LORMETAZEPAM
     Dosage: UNK, 1X/DAY
  5. ENBREL [Suspect]
     Active Substance: ETANERCEPT
     Indication: RHEUMATOID ARTHRITIS
     Dosage: 25 MG, QWK
     Route: 030
     Dates: start: 2013, end: 201701
  6. ENALAPRIL MALEATE. [Concomitant]
     Active Substance: ENALAPRIL MALEATE
     Dosage: 10 MG, 1X/DAY
  7. PERDIPINE-LA [Concomitant]
     Dosage: 40 MG, 2X/DAY

REACTIONS (4)
  - Cardiomegaly [Unknown]
  - Cardiac failure [Recovered/Resolved]
  - Pleural effusion [Unknown]
  - Incorrect route of product administration [Unknown]

NARRATIVE: CASE EVENT DATE: 2013
